FAERS Safety Report 17394582 (Version 1)
Quarter: 2020Q1

REPORT INFORMATION
  Report Type: Spontaneous
  Country: US (occurrence: US)
  Receive Date: 20200210
  Receipt Date: 20200210
  Transmission Date: 20200409
  Serious: No
  Sender: FDA-Public Use
  Company Number: US-ALKEM LABORATORIES LIMITED-US-ALKEM-2019-03332

PATIENT
  Sex: Male
  Weight: 74 kg

DRUGS (3)
  1. GABAPENTIN. [Suspect]
     Active Substance: GABAPENTIN
     Indication: PANCREATITIS
     Dosage: 300 MILLIGRAM, OD
     Route: 048
     Dates: start: 2017
  2. GABAPENTIN. [Suspect]
     Active Substance: GABAPENTIN
     Dosage: 800 MILLIGRAM, TID
     Route: 048
  3. GABAPENTIN. [Suspect]
     Active Substance: GABAPENTIN
     Indication: PANCREATITIS
     Dosage: UNKNOWN
     Route: 065

REACTIONS (1)
  - Drug ineffective for unapproved indication [Unknown]
